FAERS Safety Report 5371837-X (Version None)
Quarter: 2007Q2

REPORT INFORMATION
  Report Type: 
  Country: None (occurrence: None)
  Receive Date: 20070625
  Receipt Date: 20070618
  Transmission Date: 20071010
  Serious: Yes (Death, Life-Threatening, Hospitalization)
  Sender: FDA-Public Use
  Company Number: 2007SP008078

PATIENT
  Age: 57 Year
  Sex: Female
  Weight: 67 kg

DRUGS (3)
  1. TEMODAL [Suspect]
     Indication: GLIOBLASTOMA
     Dosage: PO
     Route: 048
     Dates: start: 20070327, end: 20070419
  2. SULPHAMETHOXAZOLE [Concomitant]
  3. TRIMETHOPRIM [Concomitant]

REACTIONS (9)
  - ASTHENIA [None]
  - CHILLS [None]
  - HYPOKALAEMIA [None]
  - LEUKOPENIA [None]
  - PSEUDOMONAL BACTERAEMIA [None]
  - PYREXIA [None]
  - THROMBOCYTOPENIA [None]
  - TRANSFUSION REACTION [None]
  - TUMOUR HAEMORRHAGE [None]
